FAERS Safety Report 9994084 (Version 1)
Quarter: 2014Q1

REPORT INFORMATION
  Report Type: Spontaneous
  Country: US (occurrence: US)
  Receive Date: 20140310
  Receipt Date: 20140310
  Transmission Date: 20141002
  Serious: No
  Sender: FDA-Public Use
  Company Number: US-AMGEN-USASP2014003547

PATIENT
  Age: 60 Year
  Sex: Female

DRUGS (12)
  1. SENSIPAR [Suspect]
     Indication: PRODUCT USED FOR UNKNOWN INDICATION
     Dosage: 30 MG, DAILY
     Route: 065
  2. SENSIPAR [Suspect]
     Dosage: 15 MG (HALF TABLET OF 30 MG) DAILY.
     Route: 065
  3. RENVELA [Concomitant]
  4. OMEPRAZOLE [Concomitant]
  5. METOPROLOL [Concomitant]
  6. DILTIAZEM [Concomitant]
  7. SIMVASTATIN [Concomitant]
  8. CALCITRIOL [Concomitant]
  9. FUROSEMIDE [Concomitant]
  10. INSULIN [Concomitant]
     Indication: DIABETES MELLITUS
  11. ASPIRIN [Concomitant]
     Dosage: 1 DF, QD
  12. KLOR CON [Concomitant]

REACTIONS (4)
  - Dizziness [Recovering/Resolving]
  - Nausea [Recovering/Resolving]
  - Insomnia [Recovering/Resolving]
  - Cardiac murmur [Unknown]
